FAERS Safety Report 5337452-9 (Version None)
Quarter: 2007Q2

REPORT INFORMATION
  Report Type: 
  Country: None (occurrence: None)
  Receive Date: 20070529
  Receipt Date: 20070522
  Transmission Date: 20071010
  Serious: Yes (Hospitalization)
  Sender: FDA-Public Use
  Company Number: FR-BOEHRINGER INGELHEIM PHARMACEUTICALS, INC.-2007-DE-03040GD

PATIENT
  Age: 53 Year
  Sex: Male

DRUGS (3)
  1. NEVIRAPINE [Suspect]
     Indication: HIV INFECTION
     Dates: start: 20050101
  2. LAMIVUDINE [Suspect]
     Indication: HIV INFECTION
     Dates: start: 20050101
  3. STAVUDINE [Suspect]
     Indication: HIV INFECTION
     Dates: start: 20050101

REACTIONS (2)
  - ATYPICAL MYCOBACTERIAL INFECTION [None]
  - CD4 LYMPHOCYTES DECREASED [None]
